FAERS Safety Report 19450030 (Version 7)
Quarter: 2022Q3

REPORT INFORMATION
  Report Type: Spontaneous
  Country: US (occurrence: US)
  Receive Date: 20210622
  Receipt Date: 20220706
  Transmission Date: 20221027
  Serious: Yes (Hospitalization, Other)
  Sender: FDA-Public Use
  Company Number: NVSC2021US132167

PATIENT
  Age: 20 Year
  Sex: Female
  Weight: 61 kg

DRUGS (11)
  1. ADAKVEO [Suspect]
     Active Substance: CRIZANLIZUMAB-TMCA
     Indication: Sickle cell anaemia with crisis
     Dosage: 5 MG/KG, QMO (INTO BLOODSTREAM VIA VEIN)
     Route: 042
     Dates: start: 20201020, end: 20201020
  2. ADAKVEO [Suspect]
     Active Substance: CRIZANLIZUMAB-TMCA
     Dosage: 5 MG/KG, QMO (INTO BLOODSTREAM VIA VEIN)
     Route: 042
     Dates: start: 20201021, end: 20201021
  3. ADAKVEO [Suspect]
     Active Substance: CRIZANLIZUMAB-TMCA
     Dosage: 5 MG/KG, QMO (INTO BLOODSTREAM VIA VEIN)
     Route: 042
     Dates: start: 20201104, end: 20201104
  4. ADAKVEO [Suspect]
     Active Substance: CRIZANLIZUMAB-TMCA
     Dosage: 5 MG/KG, QMO (INTO BLOODSTREAM VIA VEIN)
     Route: 042
     Dates: start: 20201217, end: 20201217
  5. ADAKVEO [Suspect]
     Active Substance: CRIZANLIZUMAB-TMCA
     Dosage: 5 MG/KG, QMO (INTO BLOODSTREAM VIA VEIN)
     Route: 042
     Dates: start: 20210120, end: 20210120
  6. ADAKVEO [Suspect]
     Active Substance: CRIZANLIZUMAB-TMCA
     Dosage: 5 MG/KG, QMO (INTO BLOODSTREAM VIA VEIN)
     Route: 042
     Dates: start: 20210217, end: 20210217
  7. ADAKVEO [Suspect]
     Active Substance: CRIZANLIZUMAB-TMCA
     Dosage: 5 MG/KG, QMO (INTO BLOODSTREAM VIA VEIN)
     Route: 042
     Dates: start: 20210317, end: 20210317
  8. ADAKVEO [Suspect]
     Active Substance: CRIZANLIZUMAB-TMCA
     Dosage: 5 MG/KG, QMO (INTO BLOODSTREAM VIA VEIN)
     Route: 042
     Dates: start: 20210414, end: 20210414
  9. ADAKVEO [Suspect]
     Active Substance: CRIZANLIZUMAB-TMCA
     Dosage: 5 MG/KG, QMO (INTO BLOODSTREAM VIA VEIN)
     Route: 042
     Dates: start: 20210512, end: 20210512
  10. ADAKVEO [Suspect]
     Active Substance: CRIZANLIZUMAB-TMCA
     Dosage: 5 MG/KG, QMO (INTO BLOODSTREAM VIA VEIN)
     Route: 042
     Dates: start: 20210609, end: 20210609
  11. DIPHENHYDRAMINE [Concomitant]
     Active Substance: DIPHENHYDRAMINE
     Indication: Product used for unknown indication
     Dosage: UNK
     Route: 048

REACTIONS (17)
  - Infusion related reaction [Recovered/Resolved with Sequelae]
  - Crying [Recovered/Resolved with Sequelae]
  - Screaming [Recovered/Resolved with Sequelae]
  - Dyspnoea [Recovered/Resolved with Sequelae]
  - Pain [Recovered/Resolved with Sequelae]
  - Abdominal pain [Recovered/Resolved with Sequelae]
  - Chest pain [Recovered/Resolved with Sequelae]
  - Arthralgia [Recovered/Resolved with Sequelae]
  - Back pain [Recovered/Resolved with Sequelae]
  - Pain in extremity [Recovered/Resolved with Sequelae]
  - Acute chest syndrome [Recovering/Resolving]
  - Pyrexia [Recovering/Resolving]
  - Multiple organ dysfunction syndrome [Recovering/Resolving]
  - Mental status changes [Recovering/Resolving]
  - Fat embolism syndrome [Recovering/Resolving]
  - Dysarthria [Recovered/Resolved with Sequelae]
  - Parvovirus infection [Recovering/Resolving]

NARRATIVE: CASE EVENT DATE: 20210609
